FAERS Safety Report 18218173 (Version 1)
Quarter: 2020Q3

REPORT INFORMATION
  Report Type: Report from Study
  Country: IT (occurrence: IT)
  Receive Date: 20200901
  Receipt Date: 20200901
  Transmission Date: 20201103
  Serious: Yes (Other)
  Sender: FDA-Public Use
  Company Number: IT-PFIZER INC-2020336655

PATIENT
  Age: 60 Year
  Sex: Female

DRUGS (2)
  1. HALCION [Suspect]
     Active Substance: TRIAZOLAM
     Dosage: 7 DF, TOTAL
     Route: 048
     Dates: start: 20200730, end: 20200730
  2. BISOPROLOL FUMARATE. [Concomitant]
     Active Substance: BISOPROLOL FUMARATE
     Dosage: 1.25 MG

REACTIONS (3)
  - Crying [Unknown]
  - Hypokinesia [Unknown]
  - Drug abuse [Unknown]

NARRATIVE: CASE EVENT DATE: 20200730
